FAERS Safety Report 9490094 (Version 1)
Quarter: 2013Q3

REPORT INFORMATION
  Report Type: Spontaneous
  Country: JP (occurrence: JP)
  Receive Date: 20130829
  Receipt Date: 20130829
  Transmission Date: 20140515
  Serious: Yes (Death)
  Sender: FDA-Public Use
  Company Number: JP-MYLANLABS-2013S1018786

PATIENT
  Age: 95 Year
  Sex: Male

DRUGS (8)
  1. METHYLPREDNISOLONE [Suspect]
     Indication: PNEUMONIA CHLAMYDIAL
     Dosage: 500 MG/DAY
     Route: 065
  2. METHYLPREDNISOLONE [Suspect]
     Indication: PNEUMONIA CHLAMYDIAL
     Dosage: 1000 MG/DAY
     Route: 065
  3. PREDNISOLONE [Suspect]
     Indication: PNEUMONIA CHLAMYDIAL
     Dosage: 40 MG/DAY
     Route: 065
  4. PREDNISOLONE [Suspect]
     Indication: PNEUMONIA CHLAMYDIAL
     Dosage: 60 MG/DAY
     Route: 065
  5. CEFTRIAXONE [Concomitant]
     Indication: PNEUMONIA CHLAMYDIAL
     Dosage: 1 G/DAY
     Route: 065
  6. COTRIMOXAZOLE [Concomitant]
     Indication: ANTIFUNGAL PROPHYLAXIS
     Dosage: 160 MG/DAY TRIMETHOPRIM
     Route: 065
  7. MEROPENEM [Concomitant]
     Indication: PNEUMONIA CHLAMYDIAL
     Dosage: 2 G/DAY
     Route: 065
  8. AZITHROMYCIN [Concomitant]
     Indication: PNEUMONIA CHLAMYDIAL
     Dosage: 500 MG/DAY
     Route: 065

REACTIONS (2)
  - Bronchopulmonary aspergillosis [Fatal]
  - Pneumocystis jirovecii pneumonia [Fatal]
